FAERS Safety Report 9845951 (Version 2)
Quarter: 2014Q3

REPORT INFORMATION
  Report Type: Spontaneous
  Country: US (occurrence: US)
  Receive Date: 20140127
  Receipt Date: 20140808
  Transmission Date: 20150326
  Serious: Yes (Hospitalization, Other)
  Sender: FDA-Public Use
  Company Number: US-009507513-1401USA010037

PATIENT
  Sex: Female
  Weight: 118.46 kg

DRUGS (1)
  1. NUVARING [Suspect]
     Active Substance: ETHINYL ESTRADIOL\ETONOGESTREL
     Indication: CONTRACEPTION
     Dosage: 0.12-0.015, AS DIRECTED
     Route: 067
     Dates: end: 20090913

REACTIONS (7)
  - Pulmonary embolism [Unknown]
  - Cervical dysplasia [Recovered/Resolved]
  - Cervical polyp [Unknown]
  - Vaginal discharge [Unknown]
  - Cervical conisation [Unknown]
  - Vaginal haemorrhage [Unknown]
  - Deep vein thrombosis [Unknown]

NARRATIVE: CASE EVENT DATE: 20080124
